FAERS Safety Report 6368750-8 (Version None)
Quarter: 2009Q3

REPORT INFORMATION
  Report Type: 
  Country: None (occurrence: None)
  Receive Date: 20090917
  Receipt Date: 20090917
  Transmission Date: 20100115
  Serious: Yes (Hospitalization)
  Sender: FDA-Public Use
  Company Number: None

PATIENT
  Age: 70 Year
  Sex: Female

DRUGS (18)
  1. TAXOL [Suspect]
     Indication: BREAST CANCER
     Dosage: 80 MG/M2 3XM IV BOLUS
     Route: 040
     Dates: start: 20090512, end: 20090818
  2. SUTENT [Suspect]
     Indication: BREAST CANCER
     Dosage: 25 MG QD PO
     Route: 048
     Dates: start: 20090429, end: 20090820
  3. LEVOTHYROXINE SODIUM [Concomitant]
  4. SIMVASTATIN [Concomitant]
  5. HYZAAR [Concomitant]
  6. PROPRANOLOL [Concomitant]
  7. FLUOCINONIDE [Concomitant]
  8. NASACORT [Concomitant]
  9. TYLENOL (CAPLET) [Concomitant]
  10. MARY'S MAGIC MOUTHWASH [Concomitant]
  11. PROCTOSOL [Concomitant]
  12. IMODIUM [Concomitant]
  13. KLOR-CON [Concomitant]
  14. AUGMENTIN [Concomitant]
  15. CIPROLOXACIN [Concomitant]
  16. FLUCONAZOLE [Concomitant]
  17. OXYCODONE [Concomitant]
  18. COMPAZINE [Concomitant]

REACTIONS (2)
  - CARDIAC FAILURE CONGESTIVE [None]
  - THERAPEUTIC AGENT TOXICITY [None]
